FAERS Safety Report 5272322-6 (Version None)
Quarter: 2007Q1

REPORT INFORMATION
  Report Type: 
  Country: None (occurrence: None)
  Receive Date: 20070322
  Receipt Date: 20070313
  Transmission Date: 20070707
  Serious: Yes (Hospitalization)
  Sender: FDA-Public Use
  Company Number: ES-JNJFOC-20070303243

PATIENT
  Age: 47 Year
  Sex: Female

DRUGS (5)
  1. RISPERDAL CONSTA [Suspect]
     Indication: SCHIZOPHRENIA
     Route: 030
  2. SOLIAN [Concomitant]
     Indication: SCHIZOPHRENIA
     Route: 048
  3. IDALPREM [Concomitant]
     Route: 048
  4. SEROQUEL [Concomitant]
     Indication: SCHIZOPHRENIA
     Route: 048
  5. AUXINA A+E [Concomitant]
     Route: 048

REACTIONS (1)
  - ANTICHOLINERGIC SYNDROME [None]
